FAERS Safety Report 22633044 (Version 1)
Quarter: 2023Q2

REPORT INFORMATION
  Report Type: Spontaneous
  Country: AU (occurrence: AU)
  Receive Date: 20230623
  Receipt Date: 20230623
  Transmission Date: 20230722
  Serious: Yes (Hospitalization, Other)
  Sender: FDA-Public Use
  Company Number: AU-BAXTER-2023BAX024381

PATIENT
  Sex: Male

DRUGS (7)
  1. DOXORUBICIN [Suspect]
     Active Substance: DOXORUBICIN
     Dosage: AS A PART OF R-MINCHOP 1 CYCLE,AND AS PART OF  R-CHOPX 5 CYCLES
     Route: 065
  2. CYCLOPHOSPHAMIDE [Suspect]
     Active Substance: CYCLOPHOSPHAMIDE
     Dosage: AS A PART OF R-MINCHOP 1 CYCLE,AND AS PART OF  R-CHOPX 5 CYCLES
     Route: 065
  3. VINCRISTINE [Suspect]
     Active Substance: VINCRISTINE
     Dosage: AS A PART OF R-MINCHOP 1 CYCLE,AND AS PART OF  R-CHOPX 5 CYCLES
     Route: 065
  4. PREDNISONE [Suspect]
     Active Substance: PREDNISONE
     Dosage: AS A PART OF R-MINCHOP 1 CYCLE,AND AS PART OF  R-CHOPX 5 CYCLES
     Route: 065
  5. RITUXIMAB [Suspect]
     Active Substance: RITUXIMAB
     Dosage: AS A PART OF R-MINCHOP 1 CYCLE,AND AS PART OF  R-CHOPX 5 CYCLES
     Route: 065
  6. RITUXIMAB [Suspect]
     Active Substance: RITUXIMAB
     Dosage: 2ND LINE TREATMENT, AS A PART OF BR REGIMEN
     Route: 065
  7. BENDAMUSTINE [Suspect]
     Active Substance: BENDAMUSTINE
     Dosage: 2ND LINE TREATMENT, AS A PART OF BR REGIMEN
     Route: 065

REACTIONS (4)
  - Toxicity to various agents [Unknown]
  - Cytopenia [Unknown]
  - Therapy partial responder [Unknown]
  - Splenomegaly [Unknown]
